FAERS Safety Report 8254615-3 (Version None)
Quarter: 2012Q1

REPORT INFORMATION
  Report Type: 
  Country: None (occurrence: None)
  Receive Date: 20120329
  Receipt Date: 20120315
  Transmission Date: 20120608
  Serious: Yes (Death, Life-Threatening, Hospitalization)
  Sender: FDA-Public Use
  Company Number: 1203121

PATIENT
  Sex: Male
  Weight: 77.4 kg

DRUGS (3)
  1. CYCLOPHOSPHAMIDE [Suspect]
     Indication: CHRONIC LYMPHOCYTIC LEUKAEMIA
     Dosage: 600 MG/M2 ON WEEKS, 1,5,9,13,17 AND 21, INTRAVEOUS (NOT OTHERWISE SPECIFIED)
     Route: 042
     Dates: start: 20080616, end: 20081117
  2. RITUXAN [Suspect]
     Indication: CHRONIC LYMPHOCYTIC LEUKAEMIA
     Dosage: 375 MG/M2 OVER 4 HR/ON ONE DAY ON WEEKS 1,5,9,13,17 AND 21, INTRAVANEOUS (NOT OTHERWISE SPECIFIED)
     Route: 042
     Dates: start: 20080616, end: 20081117
  3. PENTOSTATIN [Suspect]
     Indication: CHRONIC LYMPHOCYTIC LEUKAEMIA
     Dosage: 4 MG/M2 X 1 DAY WEEKS, 1,5,9,13,17 AND 21, INTRAVENOUS (NOT OTHERWISE SPECIFIED)
     Route: 042
     Dates: start: 20080616, end: 20081117

REACTIONS (6)
  - ASCITES [None]
  - BURKITT'S LYMPHOMA [None]
  - TREATMENT RELATED SECONDARY MALIGNANCY [None]
  - METASTATIC NEOPLASM [None]
  - REFUSAL OF TREATMENT BY PATIENT [None]
  - COOMBS POSITIVE HAEMOLYTIC ANAEMIA [None]
